FAERS Safety Report 4314394-9 (Version None)
Quarter: 2004Q1

REPORT INFORMATION
  Report Type: 
  Country: None (occurrence: None)
  Receive Date: 20040309
  Receipt Date: 20040220
  Transmission Date: 20041129
  Serious: Yes (Hospitalization, Other)
  Sender: FDA-Public Use
  Company Number: US-GLAXOSMITHKLINE-A0499191A

PATIENT
  Age: 44 Year
  Sex: Male

DRUGS (7)
  1. ZIAGEN [Suspect]
     Indication: HIV INFECTION
     Dosage: 300MG TWICE PER DAY
     Route: 048
     Dates: end: 20040219
  2. TYLENOL (CAPLET) [Concomitant]
  3. NORVASC [Concomitant]
  4. COREG [Concomitant]
  5. CLONIDINE [Concomitant]
  6. DECADRON [Concomitant]
  7. DIAZEPAM [Concomitant]

REACTIONS (5)
  - CONVULSION [None]
  - INFECTION IN AN IMMUNOCOMPROMISED HOST [None]
  - INFLUENZA LIKE ILLNESS [None]
  - PYREXIA [None]
  - TREATMENT NONCOMPLIANCE [None]
